FAERS Safety Report 21242825 (Version 7)
Quarter: 2024Q3

REPORT INFORMATION
  Report Type: Report from Study
  Country: US (occurrence: US)
  Receive Date: 20220823
  Receipt Date: 20240708
  Transmission Date: 20241017
  Serious: Yes (Hospitalization, Other)
  Sender: IPSEN
  Company Number: US-KOREA IPSEN Pharma-2022-23895

PATIENT
  Age: 60 Year
  Sex: Female

DRUGS (1)
  1. SOMATULINE DEPOT [Suspect]
     Active Substance: LANREOTIDE ACETATE
     Indication: Carcinoid tumour of the stomach
     Dosage: 120MG
     Route: 058
     Dates: start: 201812

REACTIONS (9)
  - Diabetic coma [Recovered/Resolved]
  - Renal failure [Unknown]
  - Chronic kidney disease [Unknown]
  - Cholelithiasis [Unknown]
  - Vitamin D decreased [Unknown]
  - Blood glucose increased [Unknown]
  - Blood potassium increased [Not Recovered/Not Resolved]
  - Blood pressure increased [Unknown]
  - Product dose omission issue [Unknown]

NARRATIVE: CASE EVENT DATE: 20211201
